FAERS Safety Report 8477989-7 (Version None)
Quarter: 2012Q2

REPORT INFORMATION
  Report Type: 
  Country: None (occurrence: None)
  Receive Date: 20120629
  Receipt Date: 20120627
  Transmission Date: 20120825
  Serious: Yes (Other)
  Sender: FDA-Public Use
  Company Number: US-BAYER-2012-064026

PATIENT
  Sex: Female

DRUGS (1)
  1. AVELOX [Suspect]
     Indication: SINUSITIS
     Dosage: UNK
     Dates: end: 20120626

REACTIONS (6)
  - CHEST DISCOMFORT [None]
  - DIZZINESS [None]
  - THROAT TIGHTNESS [None]
  - INSOMNIA [None]
  - SENSATION OF HEAVINESS [None]
  - NAUSEA [None]
